FAERS Safety Report 15012040 (Version 1)
Quarter: 2018Q2

REPORT INFORMATION
  Report Type: Spontaneous
  Country: US (occurrence: US)
  Receive Date: 20180529
  Receipt Date: 20180529
  Transmission Date: 20180711
  Serious: Yes (Hospitalization)
  Sender: FDA-Public Use
  Company Number: None

PATIENT
  Age: 31 Year

DRUGS (5)
  1. VENLAFAXINE [Concomitant]
     Active Substance: VENLAFAXINE HYDROCHLORIDE
  2. BLEOMYCIN [Suspect]
     Active Substance: BLEOMYCIN SULFATE
     Indication: OVARIAN CANCER
  3. ETOPOSIDE. [Suspect]
     Active Substance: ETOPOSIDE
  4. CISPLATIN. [Suspect]
     Active Substance: CISPLATIN
  5. CIPRO [Concomitant]
     Active Substance: CIPROFLOXACIN HYDROCHLORIDE

REACTIONS (3)
  - Febrile neutropenia [None]
  - Anaemia [None]
  - Mucosal inflammation [None]

NARRATIVE: CASE EVENT DATE: 20180406
